FAERS Safety Report 4468975-2 (Version None)
Quarter: 2004Q4

REPORT INFORMATION
  Report Type: 
  Country: None (occurrence: None)
  Receive Date: 20041004
  Receipt Date: 20041004
  Transmission Date: 20050328
  Serious: Yes (Other)
  Sender: FDA-Public Use
  Company Number: None

PATIENT
  Age: 72 Year
  Sex: Male
  Weight: 86.2 kg

DRUGS (4)
  1. OMEPRAZOLE [Suspect]
  2. HYDROCHLOROTHIAZIDE [Concomitant]
  3. ALBUTEROL 90/INPRATROP18MCG [Concomitant]
  4. SILDENAFIL CITRATE [Concomitant]

REACTIONS (1)
  - DIARRHOEA [None]
